FAERS Safety Report 21410588 (Version 1)
Quarter: 2022Q4

REPORT INFORMATION
  Report Type: Spontaneous
  Country: IN (occurrence: IN)
  Receive Date: 20221005
  Receipt Date: 20221005
  Transmission Date: 20230112
  Serious: Yes (Death, Life-Threatening, Hospitalization)
  Sender: FDA-Public Use
  Company Number: IN-MYLANLABS-2022M1110448

PATIENT
  Age: 36 Year
  Sex: Male

DRUGS (2)
  1. FLUDARABINE [Suspect]
     Active Substance: FLUDARABINE PHOSPHATE
     Indication: Bone marrow conditioning regimen
     Dosage: 30 MILLIGRAM/SQ. METER, QD, FROM DAY -7 TO DAY -2 OF THE TRANSPLANT
     Route: 065
  2. CYCLOPHOSPHAMIDE [Suspect]
     Active Substance: CYCLOPHOSPHAMIDE
     Indication: Bone marrow conditioning regimen
     Dosage: 60 MILLIGRAM/KILOGRAM, QD, 60 MILLIGRAM/KILOGRAM, QD, ON DAY -3 AND DAY -2 OF THE TRANSPLANT
     Route: 065

REACTIONS (7)
  - Haemorrhage [Fatal]
  - Myopericarditis [Fatal]
  - Cardiac tamponade [Unknown]
  - Haemodynamic instability [Unknown]
  - Cardiac disorder [Unknown]
  - Respiratory distress [Unknown]
  - Hypoxia [Unknown]
